FAERS Safety Report 20027637 (Version 2)
Quarter: 2025Q4

REPORT INFORMATION
  Report Type: Spontaneous
  Country: EU (occurrence: EU)
  Receive Date: 20211103
  Receipt Date: 20251226
  Transmission Date: 20260117
  Serious: Yes (Other)
  Sender: AUROBINDO
  Company Number: EU-MLMSERVICE-20211014-3169628-1

PATIENT
  Age: 58 Year
  Sex: Male

DRUGS (1)
  1. AMIODARONE [Suspect]
     Active Substance: AMIODARONE
     Indication: Product used for unknown indication
     Dosage: UNK
     Route: 065

REACTIONS (3)
  - Idiopathic pulmonary fibrosis [Unknown]
  - Obstructive sleep apnoea syndrome [Recovering/Resolving]
  - Interstitial lung disease [Unknown]
